FAERS Safety Report 10818193 (Version 3)
Quarter: 2015Q3

REPORT INFORMATION
  Report Type: Spontaneous
  Country: US (occurrence: US)
  Receive Date: 20150218
  Receipt Date: 20150803
  Transmission Date: 20151125
  Serious: Yes (Hospitalization, Other)
  Sender: FDA-Public Use
  Company Number: US-BAYER-2015-024710

PATIENT
  Age: 42 Year
  Sex: Female
  Weight: 68.27 kg

DRUGS (11)
  1. NUVARING [Concomitant]
     Active Substance: ETHINYL ESTRADIOL\ETONOGESTREL
  2. DEPO-PROVERA [Concomitant]
     Active Substance: MEDROXYPROGESTERONE ACETATE
  3. EXFORGE [Concomitant]
     Active Substance: AMLODIPINE BESYLATE\VALSARTAN
     Indication: HYPERTENSION
     Dosage: 10-160 MG
     Route: 048
     Dates: start: 200503
  4. VESICARE [Concomitant]
     Active Substance: SOLIFENACIN SUCCINATE
  5. SINGULAIR [Concomitant]
     Active Substance: MONTELUKAST SODIUM
     Indication: MULTIPLE ALLERGIES
     Dosage: 10 MG, UNK
     Route: 048
     Dates: start: 201207
  6. CRANBERRY. [Concomitant]
     Active Substance: CRANBERRY
  7. AZITHROMYCIN [Concomitant]
     Active Substance: AZITHROMYCIN ANHYDROUS
  8. MIRENA [Suspect]
     Active Substance: LEVONORGESTREL
     Indication: CONTRACEPTION
     Dosage: 20 MCG/24HR, CONT
     Route: 015
     Dates: start: 200910, end: 20140311
  9. NORCO [Concomitant]
     Active Substance: ACETAMINOPHEN\HYDROCODONE BITARTRATE
  10. FLAGYL [Concomitant]
     Active Substance: METRONIDAZOLE\METRONIDAZOLE HYDROCHLORIDE
  11. ALLEGRA [Concomitant]
     Active Substance: FEXOFENADINE HYDROCHLORIDE

REACTIONS (15)
  - Anxiety [None]
  - Injury [None]
  - Fear [None]
  - Uterine perforation [None]
  - Medical device discomfort [None]
  - Emotional distress [None]
  - Depressed mood [None]
  - Genital haemorrhage [None]
  - Device issue [None]
  - Device breakage [None]
  - Abdominal pain [None]
  - Internal injury [None]
  - Complication of device removal [None]
  - Pelvic pain [None]
  - Depression [None]

NARRATIVE: CASE EVENT DATE: 200912
